FAERS Safety Report 19518187 (Version 2)
Quarter: 2021Q3

REPORT INFORMATION
  Report Type: Report from Study
  Country: US (occurrence: US)
  Receive Date: 20210712
  Receipt Date: 20210923
  Transmission Date: 20211014
  Serious: Yes (Death, Other)
  Sender: FDA-Public Use
  Company Number: US-UCBSA-2021032148

PATIENT
  Age: 85 Year
  Sex: Male
  Weight: 83.9 kg

DRUGS (1)
  1. ROTIGOTINE [Suspect]
     Active Substance: ROTIGOTINE
     Indication: PARKINSON^S DISEASE
     Dosage: 2 MILLIGRAM, ONCE DAILY (QD)
     Dates: start: 20210323, end: 20210502

REACTIONS (5)
  - Dysphagia [Unknown]
  - Feeling abnormal [Unknown]
  - Death [Fatal]
  - Unresponsive to stimuli [Unknown]
  - Mastication disorder [Unknown]

NARRATIVE: CASE EVENT DATE: 2021
